FAERS Safety Report 25890902 (Version 1)
Quarter: 2025Q4

REPORT INFORMATION
  Report Type: Spontaneous
  Country: PR (occurrence: PR)
  Receive Date: 20251007
  Receipt Date: 20251007
  Transmission Date: 20260117
  Serious: No
  Sender: PFIZER
  Company Number: PR-PFIZER INC-202500196298

PATIENT
  Sex: Female

DRUGS (1)
  1. LORBRENA [Suspect]
     Active Substance: LORLATINIB
     Indication: Non-small cell lung cancer
     Dosage: 50 MG
     Dates: start: 2025

REACTIONS (2)
  - Oedema peripheral [Not Recovered/Not Resolved]
  - Lymphatic disorder [Not Recovered/Not Resolved]

NARRATIVE: CASE EVENT DATE: 20250101
